FAERS Safety Report 5282897-9 (Version None)
Quarter: 2007Q2

REPORT INFORMATION
  Report Type: 
  Country: None (occurrence: None)
  Receive Date: 20070402
  Receipt Date: 20070329
  Transmission Date: 20071010
  Serious: Yes (Life-Threatening)
  Sender: FDA-Public Use
  Company Number: PHBS2007NL05512

PATIENT
  Sex: Male
  Weight: 94 kg

DRUGS (2)
  1. ACENOCOUMAROL [Concomitant]
     Dosage: 1 MG, QID
     Dates: start: 20070110
  2. DIOVAN [Suspect]
     Indication: VENTRICULAR HYPERTROPHY
     Dosage: 80 MG, QID
     Route: 048
     Dates: start: 20070110, end: 20070310

REACTIONS (4)
  - DIZZINESS [None]
  - HYPERHIDROSIS [None]
  - LOSS OF CONSCIOUSNESS [None]
  - NAUSEA [None]
